FAERS Safety Report 23171231 (Version 2)
Quarter: 2023Q4

REPORT INFORMATION
  Report Type: Spontaneous
  Country: ES (occurrence: ES)
  Receive Date: 20231110
  Receipt Date: 20231213
  Transmission Date: 20240110
  Serious: Yes (Life-Threatening)
  Sender: FDA-Public Use
  Company Number: None

PATIENT
  Age: 35 Year
  Sex: Female
  Weight: 100 kg

DRUGS (4)
  1. ROPIVACAINE HYDROCHLORIDE [Suspect]
     Active Substance: ROPIVACAINE HYDROCHLORIDE
     Indication: Epidural anaesthesia
     Dosage: FOA: SOLUTION FOR INJECTION
     Route: 008
     Dates: start: 20231029, end: 20231029
  2. CARBETOCIN [Suspect]
     Active Substance: CARBETOCIN
     Indication: Delivery
     Dates: start: 20231029, end: 20231029
  3. OXYTOCIN [Suspect]
     Active Substance: OXYTOCIN
     Indication: Labour induction
     Dates: start: 20231029, end: 20231029
  4. BUPIVACAINE\EPINEPHRINE [Suspect]
     Active Substance: BUPIVACAINE\EPINEPHRINE
     Indication: Epidural anaesthesia
     Dosage: FOA: SOLUTION FOR INJECTION
     Route: 008
     Dates: start: 20231029, end: 20231029

REACTIONS (3)
  - Cardiac arrest [Recovering/Resolving]
  - Uterine haemorrhage [Recovering/Resolving]
  - Cardiac arrest [Recovering/Resolving]

NARRATIVE: CASE EVENT DATE: 20231029
